FAERS Safety Report 13035420 (Version 1)
Quarter: 2016Q4

REPORT INFORMATION
  Report Type: Spontaneous
  Country: US (occurrence: US)
  Receive Date: 20161215
  Receipt Date: 20161215
  Transmission Date: 20170207
  Serious: Yes (Hospitalization)
  Sender: FDA-Public Use
  Company Number: None

PATIENT
  Age: 28 Year
  Sex: Female
  Weight: 57 kg

DRUGS (1)
  1. CISPLATIN. [Suspect]
     Active Substance: CISPLATIN
     Dates: end: 20161128

REACTIONS (12)
  - Hydroureter [None]
  - Anaemia [None]
  - Pelvic pain [None]
  - Pain [None]
  - Vomiting [None]
  - Vaginal haemorrhage [None]
  - Nausea [None]
  - Hydronephrosis [None]
  - Renal failure [None]
  - Muscle spasms [None]
  - Stent malfunction [None]
  - Dysuria [None]

NARRATIVE: CASE EVENT DATE: 20161205
